FAERS Safety Report 23594625 (Version 4)
Quarter: 2024Q2

REPORT INFORMATION
  Report Type: Spontaneous
  Country: JP (occurrence: JP)
  Receive Date: 20240305
  Receipt Date: 20240603
  Transmission Date: 20240716
  Serious: Yes (Hospitalization, Other)
  Sender: FDA-Public Use
  Company Number: JP-GILEAD-2024-0663875

PATIENT
  Age: 69 Year
  Sex: Female

DRUGS (14)
  1. EPCLUSA [Suspect]
     Active Substance: SOFOSBUVIR\VELPATASVIR
     Indication: Hepatic cirrhosis
     Dosage: 1 DOSAGE FORM
     Route: 065
     Dates: start: 20231223, end: 20240215
  2. EPCLUSA [Suspect]
     Active Substance: SOFOSBUVIR\VELPATASVIR
     Indication: Hepatitis C
  3. CLOPIDOGREL [Concomitant]
     Active Substance: CLOPIDOGREL BISULFATE
     Dosage: 2 DOSAGE FORM
  4. VONOPRAZAN FUMARATE [Concomitant]
     Active Substance: VONOPRAZAN FUMARATE
     Dosage: 1 DOSAGE FORM
  5. FUROSEMIDE [Concomitant]
     Active Substance: FUROSEMIDE
     Dosage: 1 DOSAGE FORM, QD(AFTER BREAKFAST)
  6. LACTULOSE [Concomitant]
     Active Substance: LACTULOSE
     Dosage: 60 ML
  7. LIVACT [ISOLEUCINE;LEUCINE;VALINE] [Concomitant]
     Dosage: 3 DOSAGE FORM
  8. MAGNESIUM OXIDE [Concomitant]
     Active Substance: MAGNESIUM OXIDE
     Dosage: 1 DOSAGE FORM, TID(AFTER EACH MEALS)
  9. SENNOSIDES A AND B [Concomitant]
     Active Substance: SENNOSIDES A AND B
     Dosage: 2 DOSAGE FORM
  10. RILMAZAFONE HYDROCHLORIDE [Concomitant]
     Active Substance: RILMAZAFONE HYDROCHLORIDE
     Dosage: 1 DOSAGE FORM, QD(BEFORE SLEEP)
  11. PEROSPIRONE HYDROCHLORIDE [Concomitant]
     Active Substance: PEROSPIRONE HYDROCHLORIDE
     Dosage: 1 DOSAGE FORM, BID(AFTER LUNCH AND DINNER)
  12. SODIUM PICOSULFATE [Concomitant]
     Active Substance: SODIUM PICOSULFATE
     Dosage: WHEN CONSTIPATION, 10-15 DROPS/TIME
  13. LOXOPROFEN SODIUM [Concomitant]
     Active Substance: LOXOPROFEN SODIUM
     Dosage: 1-3 SHEET/DAY, ON LOWER BACK
  14. GLYCERIN [Concomitant]
     Active Substance: GLYCERIN
     Dosage: 60 ML

REACTIONS (2)
  - Hepatitis C [Unknown]
  - Hepatic cirrhosis [Unknown]
